FAERS Safety Report 4497879-4 (Version None)
Quarter: 2004Q4

REPORT INFORMATION
  Report Type: 
  Country: None (occurrence: None)
  Receive Date: 20041108
  Receipt Date: 20041027
  Transmission Date: 20050328
  Serious: Yes (Hospitalization)
  Sender: FDA-Public Use
  Company Number: 2004AP000832

PATIENT
  Age: 84 Year
  Sex: Female

DRUGS (4)
  1. OMEPRAZOLE       DELAYED-RELEASE CAPSULES [Suspect]
     Dosage: 20 MG; EVERY DAY (DAILY); ORAL
     Route: 048
  2. SLOW-K [Concomitant]
  3. ASPIRIN 10GR TIMED DISINTEGRATION TAB [Concomitant]
  4. ALTACE [Concomitant]

REACTIONS (1)
  - GASTROINTESTINAL HAEMORRHAGE [None]
